FAERS Safety Report 7312413-9 (Version None)
Quarter: 2011Q1

REPORT INFORMATION
  Report Type: 
  Country: None (occurrence: None)
  Receive Date: 20110214
  Receipt Date: 20110202
  Transmission Date: 20110831
  Serious: Yes (Life-Threatening)
  Sender: FDA-Public Use
  Company Number: 822245

PATIENT
  Age: 61 Year
  Sex: Male
  Weight: 36.2878 kg

DRUGS (2)
  1. ERBITUX [Concomitant]
  2. OXALIPLATIN [Suspect]
     Indication: COLON CANCER
     Dosage: 260 MG MILLIGRAM (S), INTRAVENOUS
     Route: 042
     Dates: start: 20100915, end: 20100915

REACTIONS (10)
  - TONGUE OEDEMA [None]
  - LARYNGEAL OEDEMA [None]
  - ERYTHEMA [None]
  - BRONCHOSPASM [None]
  - OXYGEN SATURATION DECREASED [None]
  - APPARENT DEATH [None]
  - TACHYCARDIA [None]
  - PRURITUS [None]
  - HYPERTENSION [None]
  - DRUG HYPERSENSITIVITY [None]
